FAERS Safety Report 8574683-9 (Version None)
Quarter: 2012Q3

REPORT INFORMATION
  Report Type: 
  Country: None (occurrence: None)
  Receive Date: 20120807
  Receipt Date: 20120731
  Transmission Date: 20120928
  Serious: Yes (Hospitalization)
  Sender: FDA-Public Use
  Company Number: US-BIOGENIDEC-2011BI027304

PATIENT
  Age: 39 Year
  Sex: Female

DRUGS (1)
  1. AVONEX [Suspect]
     Indication: MULTIPLE SCLEROSIS
     Route: 030
     Dates: start: 20110620

REACTIONS (5)
  - INJECTION SITE HAEMORRHAGE [None]
  - CONTUSION [None]
  - VISUAL FIELD DEFECT [None]
  - INTRACRANIAL ANEURYSM [None]
  - BRAIN OEDEMA [None]
